FAERS Safety Report 4473576-6 (Version None)
Quarter: 2004Q3

REPORT INFORMATION
  Report Type: 
  Country: None (occurrence: None)
  Receive Date: 20040917
  Receipt Date: 20040618
  Transmission Date: 20050211
  Serious: No
  Sender: FDA-Public Use
  Company Number: US-JNJFOC-20040606001

PATIENT
  Age: 4 Year
  Sex: Female
  Weight: 14.5151 kg

DRUGS (1)
  1. ORTHO EVRA [Suspect]
     Indication: INTENTIONAL MISUSE
     Dosage: 1 DOSE(S), TRANSDERMAL
     Route: 062
     Dates: start: 20040617, end: 20040617

REACTIONS (1)
  - MEDICATION ERROR [None]
